FAERS Safety Report 5689554-5 (Version None)
Quarter: 2008Q1

REPORT INFORMATION
  Report Type: 
  Country: None (occurrence: None)
  Receive Date: 20080328
  Receipt Date: 20080321
  Transmission Date: 20080703
  Serious: Yes (Other)
  Sender: FDA-Public Use
  Company Number: WAES 0801FRA00088

PATIENT
  Age: 53 Year
  Sex: Male

DRUGS (11)
  1. TAB RALTEGRAVIR POTASSIUM [Suspect]
     Indication: HIV INFECTION
     Dosage: 400 MG BID PO
     Route: 048
     Dates: start: 20071226, end: 20080114
  2. TAB TIPRANAVIR [Suspect]
     Indication: HIV INFECTION
     Dosage: 500 MG BID PO
     Route: 048
     Dates: start: 20071226, end: 20080114
  3. CAP RITONAVIR [Suspect]
     Indication: HIV INFECTION
     Dosage: 200 MG BID PO
     Route: 048
     Dates: start: 20070605, end: 20080114
  4. DIDANOSINE [Concomitant]
  5. EMTRICITABINE (+) TENOFOVIR DISOPROXIL F [Concomitant]
  6. FOSAMPRENAVIR CALCIUM [Concomitant]
  7. HEPATITIS B VIRUS VACCINE [Concomitant]
  8. LOPERAMIDE HCI [Concomitant]
  9. MARAVIROC [Concomitant]
  10. NEVIRAPINE [Concomitant]
  11. PRAVASTATIN SODIUM [Concomitant]

REACTIONS (2)
  - CYTOLYTIC HEPATITIS [None]
  - DRUG RESISTANCE [None]
